FAERS Safety Report 15175675 (Version 2)
Quarter: 2018Q3

REPORT INFORMATION
  Report Type: Report from Study
  Country: AU (occurrence: AU)
  Receive Date: 20180720
  Receipt Date: 20180813
  Transmission Date: 20181010
  Serious: Yes (Hospitalization)
  Sender: FDA-Public Use
  Company Number: PHHY2018AU044852

PATIENT
  Sex: Male

DRUGS (1)
  1. PKC412 [Suspect]
     Active Substance: MIDOSTAURIN
     Indication: LEUKAEMIA
     Dosage: 100 MG, BID
     Route: 065
     Dates: start: 20180601

REACTIONS (7)
  - Haemodynamic instability [Unknown]
  - Anaphylactoid shock [Unknown]
  - Swelling face [Unknown]
  - Drug withdrawal syndrome [Unknown]
  - Nausea [Unknown]
  - Generalised erythema [Unknown]
  - Cough [Unknown]
